FAERS Safety Report 12977814 (Version 41)
Quarter: 2025Q1

REPORT INFORMATION
  Report Type: Report from Study
  Country: IT (occurrence: IT)
  Receive Date: 20161128
  Receipt Date: 20250110
  Transmission Date: 20250409
  Serious: Yes (Life-Threatening, Hospitalization, Other)
  Sender: NOVARTIS
  Company Number: PHHY2016IT159990

PATIENT
  Age: 13 Year
  Sex: Male
  Weight: 69 kg

DRUGS (17)
  1. GLEEVEC [Suspect]
     Active Substance: IMATINIB MESYLATE
     Indication: Acute lymphocytic leukaemia
     Dosage: 300 MG, QD
     Route: 048
     Dates: start: 20160229
  2. GLEEVEC [Suspect]
     Active Substance: IMATINIB MESYLATE
     Route: 048
     Dates: start: 20160721
  3. CYCLOSPORINE [Suspect]
     Active Substance: CYCLOSPORINE
     Indication: Immunosuppression
     Dosage: 65 MG, BID
     Route: 042
     Dates: start: 20160906
  4. CYCLOSPORINE [Suspect]
     Active Substance: CYCLOSPORINE
     Indication: Chronic graft versus host disease
  5. EPINEPHRINE [Concomitant]
     Active Substance: EPINEPHRINE
     Indication: Product used for unknown indication
     Route: 065
  6. HYDROCORTISONE [Concomitant]
     Active Substance: HYDROCORTISONE
     Indication: Product used for unknown indication
     Route: 065
  7. CHLORPHENIRAMINE MALEATE [Concomitant]
     Active Substance: CHLORPHENIRAMINE MALEATE
     Indication: Product used for unknown indication
     Route: 065
  8. DEXAMETHASONE [Concomitant]
     Active Substance: DEXAMETHASONE
     Indication: Product used for unknown indication
     Route: 065
  9. PREDNISONE [Concomitant]
     Active Substance: PREDNISONE
     Indication: Graft versus host disease
     Dosage: 12.5 MG, BID
     Route: 048
     Dates: start: 20160919, end: 20160929
  10. PREDNISONE [Concomitant]
     Active Substance: PREDNISONE
     Route: 048
     Dates: start: 20160930, end: 20161009
  11. PREDNISONE [Concomitant]
     Active Substance: PREDNISONE
     Route: 048
     Dates: start: 20161010, end: 20161018
  12. PREDNISONE [Concomitant]
     Active Substance: PREDNISONE
     Dosage: 25 MG, BID
     Route: 048
     Dates: start: 20161019, end: 20161021
  13. PREDNISONE [Concomitant]
     Active Substance: PREDNISONE
     Dosage: 12.5 MG, BID
     Route: 048
     Dates: start: 20161022, end: 20161024
  14. PREDNISONE [Concomitant]
     Active Substance: PREDNISONE
     Dosage: 25 MG, BID
     Route: 048
     Dates: start: 20161025, end: 20161030
  15. PREDNISONE [Concomitant]
     Active Substance: PREDNISONE
     Route: 048
     Dates: start: 20161031, end: 20161117
  16. PREDNISONE [Concomitant]
     Active Substance: PREDNISONE
     Route: 048
     Dates: start: 20161118, end: 20161124
  17. PREDNISONE [Concomitant]
     Active Substance: PREDNISONE
     Route: 048
     Dates: start: 20161125

REACTIONS (21)
  - Rash [Recovered/Resolved]
  - Pyrexia [Recovered/Resolved]
  - Diarrhoea [Recovered/Resolved]
  - Eyelid oedema [Recovered/Resolved]
  - Dyspnoea [Recovered/Resolved]
  - Hypotension [Recovered/Resolved]
  - Pruritus [Recovered/Resolved]
  - Nausea [Unknown]
  - Steroid diabetes [Recovered/Resolved]
  - Steroid diabetes [Recovered/Resolved]
  - Diabetes mellitus [Recovered/Resolved]
  - Anaphylactic reaction [Recovered/Resolved]
  - Ocular hyperaemia [Recovered/Resolved]
  - Erythema [Recovered/Resolved]
  - Oedema [Recovered/Resolved]
  - Vomiting [Recovered/Resolved]
  - Respiratory distress [Recovered/Resolved]
  - Acute kidney injury [Recovered/Resolved]
  - Cytopenia [Recovered/Resolved]
  - Stomatitis [Unknown]
  - Weight decreased [Unknown]

NARRATIVE: CASE EVENT DATE: 20160812
